FAERS Safety Report 7651055-2 (Version None)
Quarter: 2011Q3

REPORT INFORMATION
  Report Type: 
  Country: None (occurrence: None)
  Receive Date: 20110802
  Receipt Date: 20110728
  Transmission Date: 20111222
  Serious: Yes (Other)
  Sender: FDA-Public Use
  Company Number: US-PFIZER INC-2011121734

PATIENT
  Sex: Female
  Weight: 67.12 kg

DRUGS (23)
  1. ARIMIDEX [Concomitant]
     Indication: NEOPLASM MALIGNANT
     Dosage: 1 MG, 1X/DAY
     Route: 048
  2. CYMBALTA [Concomitant]
     Indication: DEPRESSION
  3. CLONAZEPAM [Concomitant]
     Indication: PAIN
     Dosage: 2 MG, 1-2 TABLETS AT BEDTIME
     Route: 048
  4. CLONAZEPAM [Concomitant]
     Indication: DEPRESSION
  5. NEURONTIN [Suspect]
     Indication: NEUROPATHY PERIPHERAL
     Dosage: UNK MG, 3X/DAY
     Route: 048
     Dates: start: 20060101
  6. NEURONTIN [Suspect]
     Indication: PAIN
  7. SIMVASTATIN [Concomitant]
     Dosage: 80 MG, 1X/DAY, EVERY EVENING
     Route: 048
  8. OXYCODONE HCL [Suspect]
     Indication: FIBROMYALGIA
  9. ALENDRONATE SODIUM [Concomitant]
     Dosage: 70 MG, WEEKLY
     Route: 048
  10. GABAPENTIN [Suspect]
     Indication: PAIN
  11. MELATONIN [Concomitant]
     Indication: SLEEP DISORDER
     Dosage: UNK
  12. NAPROXEN (ALEVE) [Concomitant]
     Dosage: UNK
  13. OXYCODONE HCL [Suspect]
     Indication: PAIN
     Dosage: UNK, AS NEEDED
  14. TAXOL [Concomitant]
     Dosage: UNK
  15. CYMBALTA [Concomitant]
     Indication: PAIN
     Dosage: 30 MG, 4X/DAY
     Route: 048
  16. GABAPENTIN [Suspect]
     Indication: NEUROPATHY PERIPHERAL
     Dosage: 3600 MG, DIVIDED THREE TIMES DAILY
     Route: 048
     Dates: start: 20060101, end: 20110101
  17. PAROXETINE HYDROCHLORIDE [Concomitant]
     Dosage: 40 MG, 1X/DAY
     Route: 048
  18. NEURONTIN [Suspect]
     Indication: FIBROMYALGIA
  19. CLONAZEPAM [Concomitant]
     Indication: RESTLESS LEGS SYNDROME
  20. PAROXETINE HYDROCHLORIDE [Concomitant]
     Dosage: 20 MG, 1X/DAY
     Route: 048
  21. GABAPENTIN [Suspect]
     Indication: FIBROMYALGIA
  22. OXYCODONE HCL [Suspect]
     Indication: NEUROPATHY PERIPHERAL
  23. IBUPROFEN [Concomitant]
     Indication: PAIN
     Dosage: 800 MG, 1 TABLET EVERY 8 HRS
     Route: 048

REACTIONS (10)
  - PARANOIA [None]
  - DRUG DEPENDENCE [None]
  - DRUG INEFFECTIVE [None]
  - DRY MOUTH [None]
  - DEPRESSED MOOD [None]
  - PATELLA FRACTURE [None]
  - WEIGHT INCREASED [None]
  - SUICIDAL IDEATION [None]
  - MALAISE [None]
  - PAIN [None]
